FAERS Safety Report 11841796 (Version 3)
Quarter: 2016Q1

REPORT INFORMATION
  Report Type: Spontaneous
  Country: US (occurrence: US)
  Receive Date: 20151216
  Receipt Date: 20160115
  Transmission Date: 20160526
  Serious: Yes (Other)
  Sender: FDA-Public Use
  Company Number: US-SA-2015SA144528

PATIENT
  Age: 69 Year
  Sex: Female

DRUGS (3)
  1. CENTRUM SILVER [Concomitant]
     Active Substance: MINERALS\VITAMINS
  2. VITAMIN D [Concomitant]
     Active Substance: CHOLECALCIFEROL
  3. AUBAGIO [Suspect]
     Active Substance: TERIFLUNOMIDE
     Indication: MULTIPLE SCLEROSIS
     Route: 048

REACTIONS (8)
  - Symblepharon [Unknown]
  - Vascular rupture [Unknown]
  - Madarosis [Unknown]
  - Depressed mood [Unknown]
  - Balance disorder [Unknown]
  - Urticaria [Unknown]
  - Alopecia [Unknown]
  - Contusion [Recovered/Resolved]
